FAERS Safety Report 12204013 (Version 1)
Quarter: 2016Q1

REPORT INFORMATION
  Report Type: Spontaneous
  Country: US (occurrence: US)
  Receive Date: 20160323
  Receipt Date: 20160323
  Transmission Date: 20160526
  Serious: Yes (Other)
  Sender: FDA-Public Use
  Company Number: US-JNJCP-30000327382

PATIENT
  Sex: Female
  Weight: 61 kg

DRUGS (10)
  1. SUNFLOWER LECITHIN [Concomitant]
     Indication: ROUTINE HEALTH MAINTENANCE
     Dosage: 1200 MG TWICE PER DAY SINCE 25 YEARS
  2. NEUTROGENA DEEP CLEAN GENTLE SCRUB [Suspect]
     Active Substance: COSMETICS
     Indication: REMOVAL OF INERT MATTER FROM SKIN OR SUBCUTANEOUS TISSUE
     Dosage: LESS THAN DIME SIZED AMOUNT NIGHTLY
     Route: 061
  3. HRT MEDROXYPROGESTERONE (2.5MG)  ESTRADIOL (1MG) [Concomitant]
     Indication: HORMONE REPLACEMENT THERAPY
     Dosage: 2.5 MG, ONE PER DAY SINCE 25 YEARS
  4. RESTASIS [Concomitant]
     Active Substance: CYCLOSPORINE
     Indication: DRY EYE
     Dosage: TWO TIMES PER DAY SINCE FIVE YEARS
  5. VITAMIN D3 [Concomitant]
     Active Substance: CHOLECALCIFEROL
     Indication: ROUTINE HEALTH MAINTENANCE
     Dosage: 1000 IU, ONCE PER DAY SINCE 25 YEARS
  6. LLYSINE [Concomitant]
     Indication: ROUTINE HEALTH MAINTENANCE
     Dosage: 500MG, TWICE PER DAY SINCE 25 YEARS
  7. NEUTROGENA HEALTHY SKIN FACE BROAD SPECTRUM SPF15 [Suspect]
     Active Substance: AVOBENZONE\OCTISALATE\OCTOCRYLENE\OXYBENZONE
     Dosage: LESS THAN A DIME SIZED AMOUNT ONCE PER DAY
     Route: 061
     Dates: start: 20150628
  8. CALCIUM [Concomitant]
     Active Substance: CALCIUM
     Indication: ROUTINE HEALTH MAINTENANCE
     Dosage: 600 MG TWICE PER DAY SINCE 25 YEARS
  9. ZINC PICOLINATE [Concomitant]
     Active Substance: ZINC PICOLINATE
     Dosage: 25MG ONCE SINCE 25 YEARS
  10. COENZYME Q10 [Concomitant]
     Active Substance: UBIDECARENONE
     Indication: ROUTINE HEALTH MAINTENANCE
     Dosage: 200 MG ONCE PER DAY SINCE 25 YEARS

REACTIONS (3)
  - Application site paraesthesia [Recovered/Resolved]
  - Angioedema [Recovered/Resolved]
  - Pyrexia [Recovered/Resolved]

NARRATIVE: CASE EVENT DATE: 20150628
